FAERS Safety Report 9208318 (Version 3)
Quarter: 2013Q3

REPORT INFORMATION
  Report Type: Report from Study
  Country: ES (occurrence: ES)
  Receive Date: 20130403
  Receipt Date: 20130829
  Transmission Date: 20140515
  Serious: Yes (Hospitalization)
  Sender: FDA-Public Use
  Company Number: ES-ELI_LILLY_AND_COMPANY-ES201303009079

PATIENT
  Age: 75 Year
  Sex: Male
  Weight: 68 kg

DRUGS (12)
  1. TERIPARATIDE [Suspect]
     Indication: OSTEOPOROSIS
     Dosage: 20 UG, QD
     Route: 058
     Dates: start: 20130315, end: 20130320
  2. TERIPARATIDE [Suspect]
     Dosage: 20 UG, QD
     Route: 058
     Dates: start: 20130326
  3. EUTIROX [Concomitant]
     Indication: HYPOTHYROIDISM
     Dosage: 1 DF, QD
     Route: 048
  4. PERMIXON [Concomitant]
     Indication: PROSTATIC DISORDER
     Dosage: 1 TABLET Q12H
     Route: 048
  5. INSPRA [Concomitant]
     Indication: CARDIAC DISORDER
     Dosage: 1 DF, QD
     Route: 048
  6. OMEPRAZOLE [Concomitant]
     Indication: PROPHYLAXIS
     Dosage: 1 DF, QD
     Route: 048
  7. MASTICAL [Concomitant]
     Indication: MINERAL SUPPLEMENTATION
     Dosage: 2 TABLETS, QD
     Route: 048
  8. SYMBICORT FORTE [Concomitant]
     Indication: CHRONIC OBSTRUCTIVE PULMONARY DISEASE
     Dosage: 1 PUFF, Q12H
     Route: 055
  9. SPIRIVA [Concomitant]
     Indication: CHRONIC OBSTRUCTIVE PULMONARY DISEASE
     Dosage: 1 DF, QD
     Route: 055
  10. TANSULOSINA [Concomitant]
     Indication: INSOMNIA
     Dosage: 1 TABLET, QD
     Route: 048
  11. TORASEMIDE [Concomitant]
     Indication: DIURETIC THERAPY
     Dosage: 1 DF, QD
     Route: 048
  12. URBASON                            /00049601/ [Concomitant]
     Indication: DYSPNOEA
     Dosage: UNK, PRN
     Route: 048

REACTIONS (2)
  - Cholelithiasis [Recovered/Resolved]
  - Drug dose omission [Recovered/Resolved]
